FAERS Safety Report 9337103 (Version 2)
Quarter: 2013Q2

REPORT INFORMATION
  Report Type: Report from Study
  Country: US (occurrence: US)
  Receive Date: 20130607
  Receipt Date: 20130611
  Transmission Date: 20140414
  Serious: Yes (Hospitalization)
  Sender: FDA-Public Use
  Company Number: US-ABBOTT-13P-163-1097206-00

PATIENT
  Age: 60 Year
  Sex: Female

DRUGS (6)
  1. HUMIRA [Suspect]
     Indication: CROHN^S DISEASE
     Dates: start: 20130426, end: 20130510
  2. ASACOL [Concomitant]
     Indication: CROHN^S DISEASE
     Dosage: 400MG-3 TABLETS THREE TIMES DAILY
  3. 6-MP [Concomitant]
     Indication: CROHN^S DISEASE
  4. AMBIEN [Concomitant]
     Indication: INSOMNIA
     Dosage: AT NIGHT AS NEEDED
  5. XANAX [Concomitant]
     Indication: ANXIETY
     Dosage: AS NEEDED DURING THE DAY
  6. MULTIVITAMIN [Concomitant]

REACTIONS (3)
  - Small intestinal obstruction [Recovered/Resolved]
  - Pain [Unknown]
  - Constipation [Unknown]
